FAERS Safety Report 12487881 (Version 1)
Quarter: 2016Q2

REPORT INFORMATION
  Report Type: Report from Study
  Country: CO (occurrence: CO)
  Receive Date: 20160622
  Receipt Date: 20160622
  Transmission Date: 20160815
  Serious: Yes (Hospitalization, Other)
  Sender: FDA-Public Use
  Company Number: CO-ROCHE-1567003

PATIENT
  Sex: Male

DRUGS (1)
  1. MYCOPHENOLATE MOFETIL. [Suspect]
     Active Substance: MYCOPHENOLATE MOFETIL
     Indication: HEART TRANSPLANT
     Route: 048
     Dates: start: 20120815

REACTIONS (3)
  - Cardiac valve disease [Recovered/Resolved]
  - Coronary artery disease [Recovered/Resolved with Sequelae]
  - Transplant rejection [Recovered/Resolved]

NARRATIVE: CASE EVENT DATE: 2013
